FAERS Safety Report 23011034 (Version 2)
Quarter: 2023Q4

REPORT INFORMATION
  Report Type: Report from Study
  Country: US (occurrence: US)
  Receive Date: 20230929
  Receipt Date: 20231113
  Transmission Date: 20240109
  Serious: No
  Sender: FDA-Public Use
  Company Number: US-BIOVITRUM-2023-US-015282

PATIENT
  Age: 54 Year
  Sex: Female

DRUGS (1)
  1. KINERET [Suspect]
     Active Substance: ANAKINRA
     Indication: Rheumatoid arthritis
     Dosage: 100MG, DAILY
     Route: 058
     Dates: start: 20230915

REACTIONS (4)
  - Injection site rash [Unknown]
  - Rash erythematous [Unknown]
  - Rash [Unknown]
  - Adverse reaction [Unknown]
